FAERS Safety Report 16554729 (Version 8)
Quarter: 2019Q4

REPORT INFORMATION
  Report Type: Report from Study
  Country: US (occurrence: US)
  Receive Date: 20190710
  Receipt Date: 20191203
  Transmission Date: 20200122
  Serious: Yes (Death, Hospitalization)
  Sender: FDA-Public Use
  Company Number: US-ACTELION-A-US2019-186247

PATIENT
  Age: 76 Year
  Sex: Female
  Weight: 54.42 kg

DRUGS (12)
  1. UPTRAVI [Suspect]
     Active Substance: SELEXIPAG
     Dosage: UNK
     Route: 048
     Dates: start: 20190110
  2. COUMADIN [Concomitant]
     Active Substance: WARFARIN SODIUM
     Dosage: UNK
     Dates: start: 20170422
  3. FUROSEMIDE. [Concomitant]
     Active Substance: FUROSEMIDE
     Dosage: UNK
     Dates: start: 20170422
  4. METFORMIN [Concomitant]
     Active Substance: METFORMIN HYDROCHLORIDE
     Dosage: UNK
     Dates: start: 20170307
  5. UPTRAVI [Suspect]
     Active Substance: SELEXIPAG
     Indication: PULMONARY ARTERIAL HYPERTENSION
     Dosage: 1600 MCG, BID
     Route: 048
     Dates: start: 20190228, end: 20190823
  6. TADALAFIL. [Concomitant]
     Active Substance: TADALAFIL
  7. OPSUMIT [Suspect]
     Active Substance: MACITENTAN
     Dosage: 10 MG, QD
     Route: 048
     Dates: start: 20150515
  8. LOVASTATIN. [Concomitant]
     Active Substance: LOVASTATIN
     Dosage: UNK
     Dates: start: 20120824
  9. REMODULIN [Concomitant]
     Active Substance: TREPROSTINIL
     Dosage: 92 NG/KG, PER MIN
     Route: 042
     Dates: start: 201908
  10. OXYGEN. [Concomitant]
     Active Substance: OXYGEN
  11. OPSUMIT [Suspect]
     Active Substance: MACITENTAN
     Indication: PULMONARY ARTERIAL HYPERTENSION
     Dosage: 10 MG, QD
     Route: 048
     Dates: start: 20150515, end: 20191104
  12. POTASSIUM CHLORIDE. [Concomitant]
     Active Substance: POTASSIUM CHLORIDE
     Dosage: UNK
     Dates: start: 20170422

REACTIONS (24)
  - Dyspnoea exertional [Recovered/Resolved]
  - Condition aggravated [Unknown]
  - Therapy change [Unknown]
  - Headache [Recovered/Resolved]
  - Device dislocation [Unknown]
  - Device related infection [Fatal]
  - Spinal compression fracture [Recovered/Resolved]
  - Right ventricular failure [Recovered/Resolved]
  - Dyspnoea [Recovered/Resolved]
  - Secretion discharge [Unknown]
  - Musculoskeletal pain [Unknown]
  - Oxygen consumption increased [Recovered/Resolved]
  - Catheter site pain [Unknown]
  - Pulmonary arterial hypertension [Unknown]
  - Catheter site erosion [Unknown]
  - Vertebroplasty [Recovered/Resolved with Sequelae]
  - Fatigue [Recovered/Resolved]
  - Nausea [Unknown]
  - Catheter management [Unknown]
  - Catheter site infection [Unknown]
  - N-terminal prohormone brain natriuretic peptide increased [Recovered/Resolved]
  - Pulmonary arterial pressure increased [Unknown]
  - Back pain [Recovered/Resolved]
  - General physical health deterioration [Unknown]

NARRATIVE: CASE EVENT DATE: 20190412
